FAERS Safety Report 6507161-9 (Version None)
Quarter: 2009Q4

REPORT INFORMATION
  Report Type: 
  Country: None (occurrence: None)
  Receive Date: 20091221
  Receipt Date: 20091210
  Transmission Date: 20100525
  Serious: Yes (Other)
  Sender: FDA-Public Use
  Company Number: PHHY2009CA54968

PATIENT
  Age: 63 Year
  Sex: Male

DRUGS (2)
  1. SANDOSTATIN [Suspect]
  2. SANDOSTATIN LAR [Suspect]
     Dosage: 20 MG EVERY 4 WEEKS

REACTIONS (2)
  - LIVER OPERATION [None]
  - PRURITUS [None]
